FAERS Safety Report 4477097-6 (Version None)
Quarter: 2004Q4

REPORT INFORMATION
  Report Type: 
  Country: None (occurrence: None)
  Receive Date: 20041018
  Receipt Date: 20041012
  Transmission Date: 20050328
  Serious: Yes (Other)
  Sender: FDA-Public Use
  Company Number: 200417821US

PATIENT
  Age: 65 Year
  Sex: Female

DRUGS (1)
  1. LOVENOX [Suspect]
     Indication: DEEP VENOUS THROMBOSIS PROPHYLAXIS
     Dosage: DOSE: NOT PROVIDED

REACTIONS (4)
  - PARALYSIS [None]
  - POSTOPERATIVE WOUND COMPLICATION [None]
  - SPINAL HAEMATOMA [None]
  - WOUND HAEMORRHAGE [None]
